FAERS Safety Report 18045082 (Version 1)
Quarter: 2020Q3

REPORT INFORMATION
  Report Type: Spontaneous
  Country: CA (occurrence: CA)
  Receive Date: 20200720
  Receipt Date: 20200720
  Transmission Date: 20201103
  Serious: Yes (Hospitalization, Other)
  Sender: FDA-Public Use
  Company Number: CA-AMGEN-CANSP2020113537

PATIENT
  Age: 40 Year
  Sex: Female

DRUGS (3)
  1. FILGRASTIM [Suspect]
     Active Substance: FILGRASTIM
     Dosage: 300 MICROGRAM, QD
     Route: 065
  2. FILGRASTIM [Suspect]
     Active Substance: FILGRASTIM
     Dosage: 480 MICROGRAM, QD
     Route: 065
  3. FILGRASTIM [Suspect]
     Active Substance: FILGRASTIM
     Indication: NEUTROPENIA
     Dosage: UNK
     Route: 065

REACTIONS (7)
  - Postpartum haemorrhage [Unknown]
  - Febrile neutropenia [Recovering/Resolving]
  - Activated partial thromboplastin time prolonged [Unknown]
  - Coagulopathy [Recovering/Resolving]
  - Maternal exposure during pregnancy [Recovered/Resolved]
  - COVID-19 [Recovering/Resolving]
  - Thrombocytopenia [Unknown]
